FAERS Safety Report 20993607 (Version 1)
Quarter: 2022Q2

REPORT INFORMATION
  Report Type: Spontaneous
  Country: US (occurrence: None)
  Receive Date: 20220621
  Receipt Date: 20220621
  Transmission Date: 20220721
  Serious: Yes (Other)
  Sender: FDA-Public Use
  Company Number: None

PATIENT
  Age: 61 Year
  Sex: Female
  Weight: 53.1 kg

DRUGS (6)
  1. ALBUTEROL SULFATE [Suspect]
     Active Substance: ALBUTEROL SULFATE
     Indication: Asthma
     Dosage: OTHER QUANTITY : 200 PUFF(S);?FREQUENCY : AS NEEDED;?
     Route: 055
     Dates: start: 20220618, end: 20220619
  2. ESTROGENS [Concomitant]
     Active Substance: ESTROGENS
  3. ALBUTEROL [Concomitant]
     Active Substance: ALBUTEROL
  4. LORATADINE [Concomitant]
     Active Substance: LORATADINE
  5. VITAMIN B12 [Concomitant]
     Active Substance: CYANOCOBALAMIN
  6. VITAMIN D [Concomitant]
     Active Substance: VITAMIN D NOS

REACTIONS (7)
  - Product complaint [None]
  - Product substitution issue [None]
  - Device delivery system issue [None]
  - Device delivery system issue [None]
  - Incorrect dose administered by device [None]
  - Cough [None]
  - Headache [None]

NARRATIVE: CASE EVENT DATE: 20220618
